FAERS Safety Report 16175548 (Version 2)
Quarter: 2019Q2

REPORT INFORMATION
  Report Type: Spontaneous
  Country: US (occurrence: US)
  Receive Date: 20190409
  Receipt Date: 20190605
  Transmission Date: 20190711
  Serious: No
  Sender: FDA-Public Use
  Company Number: US-ASTRAZENECA-2019SE40704

PATIENT
  Age: 49 Year
  Sex: Female
  Weight: 74.8 kg

DRUGS (2)
  1. ALBUTEROL. [Concomitant]
     Active Substance: ALBUTEROL
     Indication: ILL-DEFINED DISORDER
     Dosage: AS REQUIRED
     Route: 055
     Dates: start: 2016
  2. BEVESPI AEROSPHERE [Suspect]
     Active Substance: FORMOTEROL FUMARATE\GLYCOPYRROLATE
     Indication: CHRONIC OBSTRUCTIVE PULMONARY DISEASE
     Dosage: 9/4.5 MCG 2 PUFFS BID
     Route: 055
     Dates: start: 2018

REACTIONS (5)
  - Wrong technique in device usage process [Unknown]
  - Off label use of device [Unknown]
  - Product dose omission [Unknown]
  - Device malfunction [Unknown]
  - Dyspnoea [Unknown]

NARRATIVE: CASE EVENT DATE: 2018
